FAERS Safety Report 9525364 (Version 1)
Quarter: 2013Q3

REPORT INFORMATION
  Report Type: Spontaneous
  Country: JP (occurrence: JP)
  Receive Date: 20130916
  Receipt Date: 20130916
  Transmission Date: 20140515
  Serious: Yes (Life-Threatening)
  Sender: FDA-Public Use
  Company Number: JP-ASTRAZENECA-2013SE68822

PATIENT
  Age: 40 Year
  Sex: Female
  Weight: 65 kg

DRUGS (7)
  1. CARBOCAINE [Suspect]
     Indication: EPIDURAL ANAESTHESIA
     Route: 008
  2. PROPOFOL [Suspect]
     Indication: MAINTENANCE OF ANAESTHESIA
     Route: 042
  3. FENTANYL [Suspect]
     Indication: MAINTENANCE OF ANAESTHESIA
  4. REMIFENTANIL [Suspect]
     Indication: MAINTENANCE OF ANAESTHESIA
  5. THIAMYLAL [Suspect]
     Indication: INDUCTION OF ANAESTHESIA
  6. ROCURONIUM [Suspect]
     Indication: INDUCTION OF ANAESTHESIA
  7. SEVOFLURANE [Suspect]
     Indication: MAINTENANCE OF ANAESTHESIA

REACTIONS (7)
  - Respiratory arrest [Recovered/Resolved]
  - Blood pressure decreased [Recovered/Resolved]
  - Bradycardia [Recovered/Resolved]
  - Nausea [Recovered/Resolved]
  - Delayed recovery from anaesthesia [Recovered/Resolved]
  - Off label use [Unknown]
  - Wrong technique in drug usage process [Unknown]
